FAERS Safety Report 4387856-6 (Version None)
Quarter: 2004Q2

REPORT INFORMATION
  Report Type: 
  Country: None (occurrence: None)
  Receive Date: 20040630
  Receipt Date: 20040622
  Transmission Date: 20050107
  Serious: Yes (Hospitalization)
  Sender: FDA-Public Use
  Company Number: PHRM2004FR02177

PATIENT
  Age: 90 Year
  Sex: Female
  Weight: 67 kg

DRUGS (6)
  1. COTAREG [Suspect]
     Dosage: 1 DF, QD
     Route: 048
     Dates: end: 20040508
  2. FURADANTIN [Suspect]
     Dosage: 50 MG, QD
     Route: 048
     Dates: start: 20040402, end: 20040508
  3. EDUCTYL [Suspect]
     Route: 054
     Dates: start: 20040503, end: 20040505
  4. DI-ANTALVIC [Suspect]
     Dosage: 2 DF, BID
     Route: 048
     Dates: end: 20040508
  5. CORTANCYL [Concomitant]
     Dosage: 3 MG, QD
     Route: 048
  6. LASILIX [Concomitant]
     Dosage: 40 MG, QD
     Route: 048

REACTIONS (3)
  - ASPARTATE AMINOTRANSFERASE INCREASED [None]
  - BLOOD ALKALINE PHOSPHATASE INCREASED [None]
  - PANCREATIC ENZYMES INCREASED [None]
